FAERS Safety Report 5608256-4 (Version None)
Quarter: 2008Q1

REPORT INFORMATION
  Report Type: 
  Country: None (occurrence: None)
  Receive Date: 20080125
  Receipt Date: 20080117
  Transmission Date: 20080703
  Serious: Yes (Other)
  Sender: FDA-Public Use
  Company Number: 6040338

PATIENT
  Age: 41 Year
  Sex: Female

DRUGS (5)
  1. LODOZ (HYDROCHLOROTHIAZIDE, BISOPROLOL FUMARATE) [Suspect]
     Indication: ACCELERATED HYPERTENSION
     Dosage: 2.5 MG / 6.25MG (1 IN 1 D) ORAL
     Route: 048
     Dates: start: 20071026, end: 20071031
  2. CARBOLITIUM (300 MG) (LITHIUM CARBONATE) [Concomitant]
  3. EURIROX (125 MG) (LEVOTHYROXINE SODIUM) [Concomitant]
  4. ABILIFY (10 MG) (ARIPIPRAZOLE) [Concomitant]
  5. DEPAKIN-CHRONO (500 MG) (VALPROATE SODIUM) [Concomitant]

REACTIONS (1)
  - DIPLOPIA [None]
